FAERS Safety Report 4903012-4 (Version None)
Quarter: 2006Q1

REPORT INFORMATION
  Report Type: 
  Country: None (occurrence: None)
  Receive Date: 20060207
  Receipt Date: 20060130
  Transmission Date: 20060701
  Serious: Yes (Hospitalization)
  Sender: FDA-Public Use
  Company Number: 2006CG00221

PATIENT
  Age: 80 Year
  Sex: Male

DRUGS (9)
  1. ATACAND [Suspect]
     Route: 048
     Dates: start: 20030101
  2. BUFLOMEDIL [Suspect]
     Route: 048
     Dates: start: 20030101
  3. SIMVASTATIN [Suspect]
     Route: 048
     Dates: start: 20030101
  4. PAROXETINE HCL [Suspect]
     Route: 048
     Dates: start: 20030101
  5. VASTAREL [Suspect]
     Route: 048
     Dates: start: 20030101
  6. JOSIR LP [Suspect]
     Route: 048
     Dates: start: 20030101
  7. BUSPIRONE [Suspect]
     Dates: start: 20030101
  8. CATACOL [Suspect]
     Dates: start: 20030101
  9. TINSET [Suspect]
     Dates: start: 20030101

REACTIONS (1)
  - HICCUPS [None]
